FAERS Safety Report 14776611 (Version 3)
Quarter: 2018Q2

REPORT INFORMATION
  Report Type: Spontaneous
  Country: US (occurrence: US)
  Receive Date: 20180418
  Receipt Date: 20180520
  Transmission Date: 20180711
  Serious: Yes (Hospitalization)
  Sender: FDA-Public Use
  Company Number: US-BIOGEN-2018BI00555107

PATIENT
  Sex: Female

DRUGS (2)
  1. SPINRAZA [Suspect]
     Active Substance: NUSINERSEN
     Route: 065
     Dates: start: 20170316
  2. SPINRAZA [Suspect]
     Active Substance: NUSINERSEN
     Indication: PRODUCT USED FOR UNKNOWN INDICATION
     Route: 065
     Dates: start: 20170317

REACTIONS (10)
  - Rhinovirus infection [Recovered/Resolved]
  - Spinal muscular atrophy [Unknown]
  - Acute respiratory failure [Unknown]
  - Bronchitis [Unknown]
  - Aspiration [Unknown]
  - Vomiting [Unknown]
  - Lung hyperinflation [Unknown]
  - Pyrexia [Unknown]
  - Respiratory disorder [Unknown]
  - Bronchiolitis [Unknown]
